FAERS Safety Report 12517634 (Version 3)
Quarter: 2017Q4

REPORT INFORMATION
  Report Type: Spontaneous
  Country: JP (occurrence: JP)
  Receive Date: 20160630
  Receipt Date: 20171023
  Transmission Date: 20180320
  Serious: Yes (Hospitalization)
  Sender: FDA-Public Use
  Company Number: PHJP2016JP018251

PATIENT
  Age: 55 Year
  Sex: Male

DRUGS (2)
  1. ZYKADIA [Suspect]
     Active Substance: CERITINIB
     Dosage: 600 MG, QD
     Route: 048
     Dates: start: 20160723
  2. ZYKADIA [Suspect]
     Active Substance: CERITINIB
     Indication: NON-SMALL CELL LUNG CANCER
     Dosage: 750 MG, QD
     Route: 048
     Dates: start: 20160610, end: 20160722

REACTIONS (7)
  - Liver disorder [Unknown]
  - Flatulence [Unknown]
  - Seizure [Recovered/Resolved]
  - Chest pain [Unknown]
  - Ileus [Unknown]
  - Diarrhoea [Recovering/Resolving]
  - Hepatitis acute [Unknown]

NARRATIVE: CASE EVENT DATE: 201606
